FAERS Safety Report 25629664 (Version 1)
Quarter: 2025Q3

REPORT INFORMATION
  Report Type: Spontaneous
  Country: JP (occurrence: JP)
  Receive Date: 20250731
  Receipt Date: 20250731
  Transmission Date: 20251020
  Serious: Yes (Other)
  Sender: BRACCO
  Company Number: JP-BAYER-2025A101193

PATIENT
  Age: 55 Year
  Sex: Male

DRUGS (1)
  1. IOPAMIRON [Suspect]
     Active Substance: IOPAMIDOL
     Indication: Computerised tomogram heart

REACTIONS (2)
  - Anaphylactic shock [Recovered/Resolved]
  - Kounis syndrome [Recovering/Resolving]
